FAERS Safety Report 5476508-7 (Version None)
Quarter: 2007Q3

REPORT INFORMATION
  Report Type: 
  Country: None (occurrence: None)
  Receive Date: 20070924
  Receipt Date: 20060814
  Transmission Date: 20080115
  Serious: Yes (Disabling)
  Sender: FDA-Public Use
  Company Number: PHEH2006US07249

PATIENT
  Age: 42 Year
  Sex: Female

DRUGS (1)
  1. FEMARA [Suspect]
     Indication: BREAST CANCER STAGE II
     Dosage: 2.5 MG, QD, ORAL
     Route: 048
     Dates: start: 20040601, end: 20051201

REACTIONS (1)
  - OSTEOPENIA [None]
